FAERS Safety Report 10496004 (Version 3)
Quarter: 2014Q4

REPORT INFORMATION
  Report Type: Spontaneous
  Country: IT (occurrence: IT)
  Receive Date: 20141003
  Receipt Date: 20141010
  Transmission Date: 20150528
  Serious: Yes (Other)
  Sender: FDA-Public Use
  Company Number: CHPA2014IT012862

PATIENT
  Sex: Female

DRUGS (1)
  1. BENEFIBER [Suspect]
     Active Substance: STARCH, WHEAT

REACTIONS (2)
  - Gastrointestinal inflammation [Unknown]
  - Cystitis [Unknown]
